FAERS Safety Report 5821811-1 (Version None)
Quarter: 2008Q3

REPORT INFORMATION
  Report Type: 
  Country: None (occurrence: None)
  Receive Date: 20080724
  Receipt Date: 20080702
  Transmission Date: 20090109
  Serious: No
  Sender: FDA-Public Use
  Company Number: US-BOEHRINGER INGELHEIM GMBH, GERMANY-2008-BP-10261BP

PATIENT
  Sex: Female

DRUGS (7)
  1. CATAPRES-TTS-1 [Suspect]
     Indication: HYPERTENSION
     Route: 061
     Dates: start: 20030101
  2. OXYTROL [Concomitant]
     Indication: INCONTINENCE
  3. LIPITOR [Concomitant]
     Indication: BLOOD CHOLESTEROL INCREASED
  4. ACIPHEX [Concomitant]
     Indication: GASTRIC DISORDER
  5. LORAZEPAM [Concomitant]
     Indication: ANXIETY
  6. ASPIRIN [Concomitant]
     Indication: CARDIAC DISORDER
  7. ANTIVERT [Concomitant]
     Indication: DIZZINESS

REACTIONS (3)
  - ANXIETY [None]
  - DYSSTASIA [None]
  - TREMOR [None]
